FAERS Safety Report 7769210-X (Version None)
Quarter: 2011Q3

REPORT INFORMATION
  Report Type: 
  Country: None (occurrence: None)
  Receive Date: 20110922
  Receipt Date: 20110912
  Transmission Date: 20111222
  Serious: Yes (Hospitalization)
  Sender: FDA-Public Use
  Company Number: US-CELGENEUS-163-21880-11081762

PATIENT
  Sex: Female
  Weight: 65.376 kg

DRUGS (10)
  1. VALTREX [Concomitant]
     Dosage: 1000 MILLIGRAM
     Route: 065
     Dates: start: 20110425, end: 20110502
  2. PRILOSEC [Concomitant]
     Dosage: 20 MILLIGRAM
     Route: 048
     Dates: start: 20110301
  3. REVLIMID [Suspect]
     Dosage: 15 MILLIGRAM
     Route: 048
     Dates: start: 20110401
  4. VICODIN [Concomitant]
     Indication: BREAKTHROUGH PAIN
     Dosage: 10/325
     Route: 048
     Dates: start: 20101006
  5. DURAGESIC-100 [Concomitant]
     Indication: PAIN
     Dosage: 100 MICROGRAM
     Route: 062
     Dates: start: 20110105
  6. VALTREX [Concomitant]
     Indication: ANTIVIRAL PROPHYLAXIS
     Dosage: 500 MILLIGRAM
     Route: 048
     Dates: start: 20101101
  7. DECADRON [Concomitant]
     Indication: MULTIPLE MYELOMA
     Dosage: 40 MILLIGRAM
     Route: 048
     Dates: start: 20101001
  8. ZOMETA [Concomitant]
     Indication: MULTIPLE MYELOMA
     Dosage: 4 MILLIGRAM
     Route: 041
     Dates: start: 20110404
  9. REVLIMID [Suspect]
     Indication: MULTIPLE MYELOMA
     Dosage: 25 MILLIGRAM
     Route: 048
     Dates: start: 20100929
  10. MOTRIN [Concomitant]
     Indication: PAIN
     Dosage: 200 MILLIGRAM
     Route: 048
     Dates: start: 20110418

REACTIONS (1)
  - OSTEONECROSIS [None]
